FAERS Safety Report 23050791 (Version 2)
Quarter: 2023Q4

REPORT INFORMATION
  Report Type: Report from Study
  Country: US (occurrence: US)
  Receive Date: 20231010
  Receipt Date: 20231020
  Transmission Date: 20240110
  Serious: Yes (Hospitalization, Other)
  Sender: FDA-Public Use
  Company Number: US-ARGENX-2023-ARGX-US001471

PATIENT

DRUGS (5)
  1. VYVGART [Suspect]
     Active Substance: EFGARTIGIMOD ALFA-FCAB
     Indication: Myasthenia gravis
     Dosage: UNK
     Route: 042
     Dates: start: 20230505
  2. VYVGART [Suspect]
     Active Substance: EFGARTIGIMOD ALFA-FCAB
     Dosage: UNKUNK
     Route: 042
  3. VYVGART [Suspect]
     Active Substance: EFGARTIGIMOD ALFA-FCAB
     Dosage: 10 MG/KG
     Route: 042
     Dates: start: 20230908
  4. OZEMPIC [Concomitant]
     Active Substance: SEMAGLUTIDE
     Indication: Product used for unknown indication
     Route: 065
  5. MESTINON [Concomitant]
     Active Substance: PYRIDOSTIGMINE BROMIDE
     Indication: Product used for unknown indication
     Route: 065

REACTIONS (24)
  - Myasthenia gravis crisis [Not Recovered/Not Resolved]
  - Atrial fibrillation [Unknown]
  - Diarrhoea [Recovered/Resolved]
  - Dehydration [Recovered/Resolved]
  - Hot flush [Recovered/Resolved]
  - Feeling cold [Recovered/Resolved]
  - Nausea [Recovered/Resolved]
  - Myalgia [Recovered/Resolved]
  - Headache [Recovering/Resolving]
  - Therapy non-responder [Unknown]
  - Cardioversion [Unknown]
  - Myasthenia gravis [Unknown]
  - Gastrointestinal disorder [Not Recovered/Not Resolved]
  - Poor venous access [Recovered/Resolved]
  - Stress [Unknown]
  - Glomerular filtration rate decreased [Unknown]
  - Weight decreased [Unknown]
  - Electrolyte imbalance [Unknown]
  - Renal disorder [Unknown]
  - Dehydration [Unknown]
  - Diarrhoea [Unknown]
  - Vomiting [Unknown]
  - Nausea [Unknown]
  - Urinary tract infection [Unknown]

NARRATIVE: CASE EVENT DATE: 20230714
